FAERS Safety Report 10858816 (Version 1)
Quarter: 2015Q1

REPORT INFORMATION
  Report Type: Spontaneous
  Country: US (occurrence: US)
  Receive Date: 20150223
  Receipt Date: 20150223
  Transmission Date: 20150721
  Serious: Yes (Other)
  Sender: FDA-Public Use
  Company Number: US-CELGENEUS-163-21880-14072643

PATIENT
  Sex: Female

DRUGS (1)
  1. REVLIMID [Suspect]
     Active Substance: LENALIDOMIDE
     Indication: MYELODYSPLASTIC SYNDROME
     Dosage: 5 MILLIGRAM
     Route: 048
     Dates: start: 20091201

REACTIONS (6)
  - Hip fracture [Unknown]
  - Upper respiratory tract infection [Unknown]
  - Fall [Unknown]
  - Urinary tract infection [Unknown]
  - Femur fracture [Unknown]
  - White blood cell count decreased [Unknown]
